FAERS Safety Report 8119924-7 (Version None)
Quarter: 2012Q1

REPORT INFORMATION
  Report Type: 
  Country: None (occurrence: None)
  Receive Date: 20120206
  Receipt Date: 20120206
  Transmission Date: 20120608
  Serious: Yes (Life-Threatening, Other)
  Sender: FDA-Public Use
  Company Number: None

PATIENT
  Age: 8 Year
  Sex: Male
  Weight: 22.2263 kg

DRUGS (2)
  1. ABILIFY [Suspect]
     Dosage: 5 MG DAILY
     Dates: start: 20090202
  2. ABILIFY [Suspect]
     Dosage: 5 MG DAILY
     Dates: start: 20120101

REACTIONS (5)
  - AGGRESSION [None]
  - EATING DISORDER [None]
  - SUICIDAL IDEATION [None]
  - INTENTIONAL SELF-INJURY [None]
  - SPEECH DISORDER [None]
